FAERS Safety Report 14342821 (Version 1)
Quarter: 2017Q4

REPORT INFORMATION
  Report Type: Spontaneous
  Country: US (occurrence: US)
  Receive Date: 20171229
  Receipt Date: 20171229
  Transmission Date: 20180321
  Serious: Yes (Life-Threatening, Hospitalization, Disabling)
  Sender: FDA-Public Use
  Company Number: None

PATIENT
  Age: 62 Year
  Sex: Female
  Weight: 95.1 kg

DRUGS (9)
  1. AZITHROMYCIN ANHYDROUS. [Concomitant]
     Active Substance: AZITHROMYCIN ANHYDROUS
  2. FAMOTIDINE. [Concomitant]
     Active Substance: FAMOTIDINE
  3. CEFTRIAXONE. [Suspect]
     Active Substance: CEFTRIAXONE
     Indication: PNEUMONIA
     Route: 040
     Dates: start: 20171210, end: 20171210
  4. PREDNISONE. [Concomitant]
     Active Substance: PREDNISONE
  5. ACETAMINOPHEN. [Concomitant]
     Active Substance: ACETAMINOPHEN
  6. EPINEPHRINE. [Concomitant]
     Active Substance: EPINEPHRINE
  7. MAGNESIUM SULFATE. [Concomitant]
     Active Substance: MAGNESIUM SULFATE
  8. VANCOMYCIN [Concomitant]
     Active Substance: VANCOMYCIN
  9. ALBUTEROL. [Concomitant]
     Active Substance: ALBUTEROL

REACTIONS (9)
  - Hypersensitivity [None]
  - Hypothermia [None]
  - Dizziness [None]
  - Brain injury [None]
  - Oxygen saturation decreased [None]
  - Pulseless electrical activity [None]
  - Hypoxia [None]
  - Cardiac arrest [None]
  - Angioedema [None]

NARRATIVE: CASE EVENT DATE: 20171210
